FAERS Safety Report 4878804-0 (Version None)
Quarter: 2006Q1

REPORT INFORMATION
  Report Type: 
  Country: None (occurrence: None)
  Receive Date: 20060112
  Receipt Date: 20051123
  Transmission Date: 20060701
  Serious: No
  Sender: FDA-Public Use
  Company Number: US-GLAXOSMITHKLINE-A0583399A

PATIENT
  Age: 58 Year
  Sex: Female

DRUGS (9)
  1. BEXXAR [Suspect]
     Indication: NON-HODGKIN'S LYMPHOMA
     Route: 042
     Dates: start: 20051121
  2. PRILOSEC [Concomitant]
  3. LASIX [Concomitant]
  4. INDERAL [Concomitant]
  5. LEXAPRO [Concomitant]
  6. LAMICTAL [Concomitant]
  7. SUCRALFATE [Concomitant]
  8. ALBUTEROL [Concomitant]
  9. OXYCODONE [Concomitant]

REACTIONS (2)
  - DYSPNOEA [None]
  - WHEEZING [None]
